FAERS Safety Report 25498502 (Version 1)
Quarter: 2025Q3

REPORT INFORMATION
  Report Type: Spontaneous
  Country: EU (occurrence: EU)
  Receive Date: 20250701
  Receipt Date: 20250701
  Transmission Date: 20251020
  Serious: Yes (Hospitalization, Other)
  Sender: BAXTER
  Company Number: EU-EMA-DD-20180130-faizanevprod-141823

PATIENT
  Age: 75 Year
  Sex: Female

DRUGS (7)
  1. CYCLOPHOSPHAMIDE [Suspect]
     Active Substance: CYCLOPHOSPHAMIDE
     Indication: Chronic lymphocytic leukaemia
     Route: 065
     Dates: end: 201305
  2. IBRUTINIB [Suspect]
     Active Substance: IBRUTINIB
     Indication: Chronic lymphocytic leukaemia
     Dosage: 400 MG, QD
     Route: 065
     Dates: start: 201503
  3. IBRUTINIB [Suspect]
     Active Substance: IBRUTINIB
     Indication: Hepatitis B DNA increased
     Dosage: 420 MG, QD
     Route: 065
  4. FLUDARABINE [Suspect]
     Active Substance: FLUDARABINE PHOSPHATE
     Indication: Chronic lymphocytic leukaemia
     Route: 065
     Dates: end: 201305
  5. RITUXIMAB [Suspect]
     Active Substance: RITUXIMAB
     Indication: Chronic lymphocytic leukaemia
     Route: 065
     Dates: end: 20130501
  6. RITUXIMAB [Suspect]
     Active Substance: RITUXIMAB
     Route: 065
     Dates: start: 20150301
  7. LEVOFLOXACIN [Concomitant]
     Active Substance: LEVOFLOXACIN
     Indication: Sinusitis
     Route: 065

REACTIONS (9)
  - Mydriasis [Not Recovered/Not Resolved]
  - Aspergillus infection [Unknown]
  - Blindness [Not Recovered/Not Resolved]
  - Eyelid ptosis [Not Recovered/Not Resolved]
  - Eye movement disorder [Not Recovered/Not Resolved]
  - Blindness [Not Recovered/Not Resolved]
  - Cavernous sinus thrombosis [Unknown]
  - Acute sinusitis [Unknown]
  - Headache [Unknown]

NARRATIVE: CASE EVENT DATE: 20150301
